FAERS Safety Report 7508183-1 (Version None)
Quarter: 2011Q2

REPORT INFORMATION
  Report Type: 
  Country: None (occurrence: None)
  Receive Date: 20110527
  Receipt Date: 20110524
  Transmission Date: 20111010
  Serious: Yes (Other)
  Sender: FDA-Public Use
  Company Number: GB-PFIZER INC-2011112334

PATIENT
  Age: 49 Year
  Sex: Male
  Weight: 85.9 kg

DRUGS (3)
  1. VARENICLINE TARTRATE [Suspect]
     Indication: SMOKING CESSATION THERAPY
     Dosage: 0.5 MG, 2X/DAY
     Route: 048
     Dates: start: 20110203, end: 20110210
  2. ACETYLSALICYLIC ACID [Concomitant]
     Route: 048
  3. SIMVASTATIN [Concomitant]
     Route: 048

REACTIONS (5)
  - AGITATION [None]
  - DISTURBANCE IN ATTENTION [None]
  - SOCIAL AVOIDANT BEHAVIOUR [None]
  - DEPRESSION [None]
  - ANGER [None]
